FAERS Safety Report 8013619-6 (Version None)
Quarter: 2011Q4

REPORT INFORMATION
  Report Type: 
  Country: None (occurrence: None)
  Receive Date: 20111229
  Receipt Date: 20111222
  Transmission Date: 20120403
  Serious: Yes (Death)
  Sender: FDA-Public Use
  Company Number: RU-CELGENEUS-251-C5013-11053250

PATIENT
  Sex: Male
  Weight: 89.5 kg

DRUGS (7)
  1. LENALIDOMIDE [Suspect]
     Indication: PROSTATE CANCER
     Dosage: 25 MILLIGRAM
     Route: 048
     Dates: start: 20110321, end: 20110403
  2. PREDNISONE TAB [Suspect]
     Dosage: 10 MILLIGRAM
     Route: 065
     Dates: start: 20110503, end: 20110516
  3. PREDNISONE TAB [Suspect]
     Indication: PROSTATE CANCER
     Dosage: 10 MILLIGRAM
     Route: 065
     Dates: start: 20110321, end: 20110410
  4. ASPIRIN [Concomitant]
     Indication: THROMBOSIS PROPHYLAXIS
     Dosage: 50 MILLIGRAM
     Route: 048
     Dates: start: 20110321, end: 20110516
  5. DOCETAXEL [Suspect]
     Indication: PROSTATE CANCER
     Dosage: 150 MILLIGRAM
     Route: 065
     Dates: start: 20110321, end: 20110321
  6. DOCETAXEL [Suspect]
     Dosage: 150 MILLIGRAM
     Route: 065
     Dates: start: 20110503, end: 20110503
  7. LENALIDOMIDE [Suspect]
     Dosage: 25 MILLIGRAM
     Route: 048
     Dates: start: 20110503, end: 20110516

REACTIONS (1)
  - PNEUMONIA [None]
